FAERS Safety Report 7642458-0 (Version None)
Quarter: 2011Q3

REPORT INFORMATION
  Report Type: 
  Country: None (occurrence: None)
  Receive Date: 20110728
  Receipt Date: 20110712
  Transmission Date: 20111222
  Serious: No
  Sender: FDA-Public Use
  Company Number: US-BAYER-2011-061722

PATIENT
  Age: 87 Year
  Sex: Female
  Weight: 48 kg

DRUGS (8)
  1. DIOVAN [Concomitant]
  2. OSCAL [Concomitant]
  3. ALEVE (CAPLET) [Suspect]
     Indication: MUSCULOSKELETAL PAIN
     Dosage: TAKING 4-6 DAILY
     Route: 048
     Dates: start: 20110501
  4. ASPIRIN [Concomitant]
  5. CENTRUM SILVER [Concomitant]
  6. SIMVASTATIN [Concomitant]
  7. PLAVIX [Concomitant]
  8. AMLODIPINE [Concomitant]

REACTIONS (1)
  - DRUG EFFECT DECREASED [None]
